FAERS Safety Report 5064074-X (Version None)
Quarter: 2006Q3

REPORT INFORMATION
  Report Type: 
  Country: None (occurrence: None)
  Receive Date: 20060706
  Receipt Date: 20060307
  Transmission Date: 20061208
  Serious: No
  Sender: FDA-Public Use
  Company Number: 200611396BWH

PATIENT
  Age: 78 Year
  Sex: Male

DRUGS (14)
  1. LEVITRA [Suspect]
     Indication: ERECTILE DYSFUNCTION
     Dosage: SEE IMAGE
     Route: 048
     Dates: start: 20050101
  2. LEVITRA [Suspect]
     Indication: ERECTILE DYSFUNCTION
     Dosage: SEE IMAGE
     Route: 048
     Dates: start: 20060301
  3. LEVITRA [Suspect]
  4. PAXIL [Concomitant]
  5. ALPRAZOLAM [Concomitant]
  6. GLIPIZIDE [Concomitant]
  7. WARFARIN SODIUM [Concomitant]
  8. HYDROCHLOROTHIAZIDE [Concomitant]
  9. ATENOLOL [Concomitant]
  10. LIPITOR [Concomitant]
  11. DIOVAN [Concomitant]
  12. FOLIC ACID [Concomitant]
  13. VITAMIN D [Concomitant]
  14. MULTI-VITAMIN [Concomitant]

REACTIONS (1)
  - ERECTILE DYSFUNCTION [None]
